FAERS Safety Report 6908612-8 (Version None)
Quarter: 2010Q3

REPORT INFORMATION
  Report Type: 
  Country: None (occurrence: None)
  Receive Date: 20100805
  Receipt Date: 20100728
  Transmission Date: 20110219
  Serious: Yes (Death, Hospitalization)
  Sender: FDA-Public Use
  Company Number: US-PFIZER INC-2009306919

PATIENT
  Age: 59 Year
  Sex: Male
  Weight: 78.458 kg

DRUGS (2)
  1. SUTENT [Suspect]
     Indication: OESOPHAGEAL CARCINOMA
     Dosage: 37.5 MG, 1X/DAY
     Route: 048
     Dates: start: 20091028, end: 20091201
  2. TAXOL [Suspect]
     Indication: OESOPHAGEAL CARCINOMA
     Dosage: 170 MG, CYCLIC, D1,8,15 EVERY 4 WEEKS
     Route: 042
     Dates: start: 20091029, end: 20091127

REACTIONS (8)
  - BLOOD SODIUM DECREASED [None]
  - DISEASE PROGRESSION [None]
  - FISTULA [None]
  - HAEMORRHAGE [None]
  - NECROTISING FASCIITIS STAPHYLOCOCCAL [None]
  - OESOPHAGEAL CARCINOMA [None]
  - PANCYTOPENIA [None]
  - RENAL FAILURE ACUTE [None]
